FAERS Safety Report 9370072 (Version 1)
Quarter: 2013Q2

REPORT INFORMATION
  Report Type: Spontaneous
  Country: IN (occurrence: IN)
  Receive Date: 20130626
  Receipt Date: 20130626
  Transmission Date: 20140414
  Serious: Yes (Life-Threatening)
  Sender: FDA-Public Use
  Company Number: IN-B.I. PHARMACEUTICALS,INC./RIDGEFIELD-2013-BI-17883IG

PATIENT
  Age: 55 Year
  Sex: Female

DRUGS (3)
  1. TRAJENTA [Suspect]
     Indication: TYPE 2 DIABETES MELLITUS
     Dosage: 5 MG
     Route: 048
     Dates: start: 201304, end: 201306
  2. IRON SYRUP [Concomitant]
  3. MULTIVITAMIN [Concomitant]

REACTIONS (1)
  - Renal failure [Not Recovered/Not Resolved]
